FAERS Safety Report 9398317 (Version 2)
Quarter: 2013Q3

REPORT INFORMATION
  Report Type: Report from Study
  Country: NL (occurrence: NL)
  Receive Date: 20130712
  Receipt Date: 20130717
  Transmission Date: 20140515
  Serious: Yes (Hospitalization)
  Sender: FDA-Public Use
  Company Number: NL-GLAXOSMITHKLINE-B0903153B

PATIENT
  Age: 62 Year
  Sex: Male

DRUGS (1)
  1. PAZOPANIB [Suspect]
     Indication: RENAL CELL CARCINOMA
     Dosage: 800MG PER DAY
     Route: 048
     Dates: start: 20130605

REACTIONS (3)
  - Renal failure [Recovering/Resolving]
  - Nausea [Recovered/Resolved]
  - Dehydration [Recovered/Resolved]
